FAERS Safety Report 6296420-3 (Version None)
Quarter: 2009Q3

REPORT INFORMATION
  Report Type: 
  Country: None (occurrence: None)
  Receive Date: 20090804
  Receipt Date: 20090728
  Transmission Date: 20100115
  Serious: Yes (Other)
  Sender: FDA-Public Use
  Company Number: IT-AMGEN-UK355653

PATIENT
  Sex: Male
  Weight: 85.4 kg

DRUGS (5)
  1. VECTIBIX [Suspect]
     Indication: COLORECTAL CANCER
     Route: 042
     Dates: start: 20080627, end: 20080919
  2. INSULIN [Concomitant]
  3. WARFARIN SODIUM [Concomitant]
     Route: 048
  4. DILTIAZEM [Concomitant]
     Route: 048
  5. ENALAPRIL MALEATE [Concomitant]
     Route: 048

REACTIONS (4)
  - CONJUNCTIVITIS [None]
  - FOLLICULITIS [None]
  - HYPOMAGNESAEMIA [None]
  - XEROSIS [None]
